FAERS Safety Report 10935882 (Version 1)
Quarter: 2015Q1

REPORT INFORMATION
  Report Type: Report from Study
  Country: ES (occurrence: ES)
  Receive Date: 20150320
  Receipt Date: 20150320
  Transmission Date: 20150721
  Serious: Yes (Other)
  Sender: FDA-Public Use
  Company Number: ES-BAYER-2015-043492

PATIENT

DRUGS (4)
  1. BETAMETHASONE [Concomitant]
     Active Substance: BETAMETHASONE
     Route: 064
  2. ADALAT [Suspect]
     Active Substance: NIFEDIPINE
     Route: 064
  3. ADALAT [Suspect]
     Active Substance: NIFEDIPINE
     Route: 064
  4. BETAMETHASONE [Concomitant]
     Active Substance: BETAMETHASONE
     Route: 064

REACTIONS (2)
  - Foetal heart rate deceleration abnormality [Recovered/Resolved]
  - Foetal exposure during pregnancy [None]
